FAERS Safety Report 4589246-X (Version None)
Quarter: 2005Q1

REPORT INFORMATION
  Report Type: 
  Country: None (occurrence: None)
  Receive Date: 20050216
  Receipt Date: 20050216
  Transmission Date: 20050727
  Serious: Yes (Hospitalization)
  Sender: FDA-Public Use
  Company Number: None

PATIENT
  Age: 43 Year
  Sex: Male
  Weight: 106.2 kg

DRUGS (11)
  1. INTEGRILIN [Suspect]
     Indication: ANTIPLATELET THERAPY
     Dosage: 2 (9.5 ML BOLUSES), 17 ML/HR
     Dates: start: 20050126
  2. HEPARIN [Suspect]
     Dosage: 6,000 UNITS
     Dates: start: 20050126
  3. DIOVAN HCT [Concomitant]
  4. GLUCOPHAGE [Concomitant]
  5. AVANDIA [Concomitant]
  6. ASPIRIN [Concomitant]
  7. CLOPIDOGREL [Concomitant]
  8. MIDAZOLAM HCL [Concomitant]
  9. FENTANYL CITRATE [Concomitant]
  10. INAPSINE [Concomitant]
  11. CEFTZIDINE [Concomitant]

REACTIONS (8)
  - ARTERIAL RUPTURE [None]
  - BACK PAIN [None]
  - BOWEL SOUNDS ABNORMAL [None]
  - IATROGENIC INJURY [None]
  - POST PROCEDURAL COMPLICATION [None]
  - PROCEDURAL HYPOTENSION [None]
  - RETROPERITONEAL HAEMORRHAGE [None]
  - VASCULAR PROCEDURE COMPLICATION [None]
